FAERS Safety Report 5839860-6 (Version None)
Quarter: 2008Q3

REPORT INFORMATION
  Report Type: 
  Country: None (occurrence: None)
  Receive Date: 20080807
  Receipt Date: 20080624
  Transmission Date: 20090109
  Serious: Yes (Hospitalization)
  Sender: FDA-Public Use
  Company Number: 2008AL002863

PATIENT
  Age: 70 Year
  Sex: Male
  Weight: 75.2971 kg

DRUGS (8)
  1. DIGOXIN [Suspect]
     Indication: ARRHYTHMIA
     Dosage: 0.25MG, QE, PO
     Route: 048
  2. METFORMIN HCL [Concomitant]
  3. AMARYL [Concomitant]
  4. NORVASC [Concomitant]
  5. PRINIVIL [Concomitant]
  6. OXYCODONE HCL [Concomitant]
  7. ULTRAM [Concomitant]
  8. LASIX [Concomitant]

REACTIONS (9)
  - ARTHRALGIA [None]
  - BACK INJURY [None]
  - CARDIAC FAILURE CONGESTIVE [None]
  - CONDITION AGGRAVATED [None]
  - EXTRASYSTOLES [None]
  - OEDEMA PERIPHERAL [None]
  - PALPITATIONS [None]
  - PNEUMONIA [None]
  - SOMNOLENCE [None]
